FAERS Safety Report 15000865 (Version 4)
Quarter: 2018Q3

REPORT INFORMATION
  Report Type: Spontaneous
  Country: DK (occurrence: DK)
  Receive Date: 20180612
  Receipt Date: 20180817
  Transmission Date: 20181010
  Serious: Yes (Hospitalization)
  Sender: FDA-Public Use
  Company Number: DK-JNJFOC-20180538229

PATIENT
  Age: 74 Year
  Sex: Male

DRUGS (14)
  1. ZOLPIDEM [Concomitant]
     Active Substance: ZOLPIDEM\ZOLPIDEM TARTRATE
     Indication: INSOMNIA
     Route: 048
  2. DEXAMETHASONE. [Concomitant]
     Active Substance: DEXAMETHASONE
     Indication: PLASMA CELL MYELOMA
     Route: 048
     Dates: start: 20160429
  3. PANTOPRAZOLE [Concomitant]
     Active Substance: PANTOPRAZOLE
     Indication: GASTRIC ULCER
     Route: 048
  4. PARACETAMOL [Concomitant]
     Active Substance: ACETAMINOPHEN
     Indication: PAIN
     Route: 048
     Dates: start: 20141128
  5. ACETYLSALICYLIC ACID [Concomitant]
     Active Substance: ASPIRIN
     Indication: ANTICOAGULANT THERAPY
     Route: 048
     Dates: start: 20150129
  6. DARBEPOETIN ALFA [Concomitant]
     Active Substance: DARBEPOETIN ALFA
     Indication: ANAEMIA
     Route: 042
     Dates: start: 20170519
  7. QUININE [Concomitant]
     Active Substance: QUININE
     Indication: MUSCLE SPASMS
     Route: 048
     Dates: start: 20150129
  8. DARZALEX [Suspect]
     Active Substance: DARATUMUMAB
     Indication: PLASMA CELL MYELOMA
     Route: 042
     Dates: start: 20180418, end: 20180418
  9. ALLOPURINOL. [Concomitant]
     Active Substance: ALLOPURINOL
     Indication: GOUT
     Route: 048
     Dates: start: 20141211, end: 20180419
  10. POMALIDOMIDE [Concomitant]
     Active Substance: POMALIDOMIDE
     Indication: PLASMA CELL MYELOMA
     Route: 048
     Dates: start: 20180418
  11. MONTELUKAST [Concomitant]
     Active Substance: MONTELUKAST SODIUM
     Indication: ASTHMA PROPHYLAXIS
     Route: 048
  12. ACICLOVIR [Concomitant]
     Active Substance: ACYCLOVIR
     Indication: ANTIVIRAL PROPHYLAXIS
     Route: 048
     Dates: start: 20141211
  13. ACICLOVIR [Concomitant]
     Active Substance: ACYCLOVIR
     Indication: ANTIVIRAL PROPHYLAXIS
     Route: 048
     Dates: start: 20180418
  14. DARZALEX [Suspect]
     Active Substance: DARATUMUMAB
     Indication: ANAEMIA
     Route: 042
     Dates: start: 20180418, end: 20180418

REACTIONS (4)
  - Infusion related reaction [Recovered/Resolved]
  - Eye swelling [Recovered/Resolved]
  - Vision blurred [Recovered/Resolved]
  - Choroidal effusion [Recovered/Resolved]

NARRATIVE: CASE EVENT DATE: 20180418
